FAERS Safety Report 17595140 (Version 3)
Quarter: 2020Q2

REPORT INFORMATION
  Report Type: Report from Study
  Country: US (occurrence: US)
  Receive Date: 20200328
  Receipt Date: 20200519
  Transmission Date: 20200713
  Serious: Yes (Other)
  Sender: FDA-Public Use
  Company Number: NVSC2020US082342

PATIENT
  Sex: Male

DRUGS (1)
  1. COSENTYX [Suspect]
     Active Substance: SECUKINUMAB
     Indication: PSORIATIC ARTHROPATHY
     Dosage: 150 MG, QMO
     Route: 058

REACTIONS (5)
  - Drug ineffective [Unknown]
  - Pain [Unknown]
  - Musculoskeletal stiffness [Unknown]
  - Therapy non-responder [Unknown]
  - Psoriatic arthropathy [Unknown]
